FAERS Safety Report 12902212 (Version 2)
Quarter: 2016Q4

REPORT INFORMATION
  Report Type: Spontaneous
  Country: US (occurrence: US)
  Receive Date: 20161102
  Receipt Date: 20161104
  Transmission Date: 20170207
  Serious: No
  Sender: FDA-Public Use
  Company Number: US-PFIZER INC-2016508254

PATIENT
  Age: 51 Year
  Sex: Female
  Weight: 106.59 kg

DRUGS (3)
  1. IBRANCE [Suspect]
     Active Substance: PALBOCICLIB
     Indication: BREAST CANCER
     Dosage: 100 MG, CYCLIC (TAKING IBRANCE ONCE A DAY FOR 21 DAYS AND THEN OFF FOR 7 DAYS)
     Route: 048
     Dates: start: 20160621
  2. FEMARA [Concomitant]
     Active Substance: LETROZOLE
     Dosage: UNK
     Dates: start: 20160122
  3. FEMARA [Concomitant]
     Active Substance: LETROZOLE
     Indication: BREAST CANCER
     Dosage: 2.5 MG, 1X/DAY
     Dates: start: 20160101

REACTIONS (4)
  - Erythema [Not Recovered/Not Resolved]
  - Neuropathy peripheral [Recovering/Resolving]
  - Body temperature abnormal [Recovered/Resolved]
  - Angiopathy [Unknown]

NARRATIVE: CASE EVENT DATE: 20161025
